FAERS Safety Report 9229997 (Version 1)
Quarter: 2013Q1

REPORT INFORMATION
  Report Type: Spontaneous
  Country: US (occurrence: None)
  Receive Date: 20121022
  Receipt Date: 20121022
  Transmission Date: 20140127
  Serious: Yes (Hospitalization)
  Sender: FDA-Public Use
  Company Number: 2010S1000399

PATIENT
  Age: 54 Year
  Sex: Female

DRUGS (8)
  1. DARVOCET-N [Suspect]
     Indication: PAIN
     Route: 048
     Dates: start: 20100817, end: 201008
  2. ALBUTEROL [Concomitant]
  3. ADVAIR (SERETIDE/01420901/) [Concomitant]
  4. UNSPECIFIED ANTIHYPERTENSIVE [Concomitant]
  5. UNSPECIFIED DIABETES MEDICATION [Concomitant]
  6. SYNTHROID (LEVOTHYROXINE SODIUM) [Concomitant]
  7. UNSPECIFIED NEBULIZER [Concomitant]
  8. OXYGEN (OXYGEN) [Suspect]

REACTIONS (3)
  - Cardio-respiratory arrest [None]
  - Sedation [None]
  - Dyspnoea [None]
